FAERS Safety Report 8917988 (Version 1)
Quarter: 2012Q4

REPORT INFORMATION
  Report Type: 
  Country: US (occurrence: US)
  Receive Date: 20121120
  Receipt Date: 20121120
  Transmission Date: 20130627
  Serious: No
  Sender: FDA-Public Use
  Company Number: US-ASTRAZENECA-2012SE16531

PATIENT
  Age: 64 Year
  Sex: Female

DRUGS (4)
  1. NEXIUM [Suspect]
     Indication: GASTROOESOPHAGEAL REFLUX DISEASE
     Route: 048
  2. OMEPRAZOLE [Suspect]
     Route: 048
  3. LISINOPRIL [Concomitant]
     Indication: HYPERTENSION
  4. MELOXICAM [Concomitant]
     Indication: ARTHRITIS

REACTIONS (4)
  - Cough [Unknown]
  - Off label use [Unknown]
  - Dysphonia [Unknown]
  - Nausea [Unknown]
